FAERS Safety Report 4517482-7 (Version None)
Quarter: 2004Q4

REPORT INFORMATION
  Report Type: 
  Country: None (occurrence: None)
  Receive Date: 20041130
  Receipt Date: 20041110
  Transmission Date: 20050328
  Serious: Yes (Other)
  Sender: FDA-Public Use
  Company Number: USA040466146

PATIENT
  Age: 13 Year
  Sex: Male
  Weight: 87 kg

DRUGS (4)
  1. STRATTERA [Suspect]
     Indication: ATTENTION DEFICIT/HYPERACTIVITY DISORDER
     Dosage: 80 MG
     Dates: start: 20030205, end: 20040427
  2. ADDERALL 10 [Concomitant]
  3. LACTULOSE [Concomitant]
  4. DESYREL [Concomitant]

REACTIONS (3)
  - HEPATIC STEATOSIS [None]
  - HEPATOSPLENOMEGALY [None]
  - LOW DENSITY LIPOPROTEIN INCREASED [None]
